FAERS Safety Report 21689715 (Version 3)
Quarter: 2023Q1

REPORT INFORMATION
  Report Type: Spontaneous
  Country: DE (occurrence: DE)
  Receive Date: 20221206
  Receipt Date: 20230206
  Transmission Date: 20230418
  Serious: Yes (Death, Life-Threatening, Hospitalization, Disabling, Other)
  Sender: FDA-Public Use
  Company Number: DE-GILEAD-2022-0604678

PATIENT
  Age: 64 Year
  Sex: Male

DRUGS (16)
  1. YESCARTA [Suspect]
     Active Substance: AXICABTAGENE CILOLEUCEL
     Indication: Diffuse large B-cell lymphoma
     Route: 065
  2. MEROPENEM [Concomitant]
     Active Substance: MEROPENEM
  3. VANCOMYCIN [Concomitant]
     Active Substance: VANCOMYCIN
  4. PANTOPRAZOLE [Concomitant]
     Active Substance: PANTOPRAZOLE
     Dosage: UNK
  5. ACYCLOVIR [Concomitant]
     Active Substance: ACYCLOVIR
  6. RAMIPRIL [Concomitant]
     Active Substance: RAMIPRIL
  7. FOLIC ACID [Concomitant]
     Active Substance: FOLIC ACID
  8. THIAMINE [Concomitant]
     Active Substance: THIAMINE
  9. LEVETIRACETAM [Concomitant]
     Active Substance: LEVETIRACETAM
  10. XIPAMIDE [Concomitant]
     Active Substance: XIPAMIDE
  11. POTASSIUM [Concomitant]
     Active Substance: POTASSIUM
  12. CALCIUM [Concomitant]
     Active Substance: CALCIUM
  13. RISPERDAL [Concomitant]
     Active Substance: RISPERIDONE
  14. AMBISOME [Concomitant]
     Active Substance: AMPHOTERICIN B
  15. INSULIN NOS [Concomitant]
     Active Substance: INSULIN NOS
  16. FLUCONAZOLE [Concomitant]
     Active Substance: FLUCONAZOLE

REACTIONS (4)
  - Asphyxia [Fatal]
  - Neurotoxicity [Not Recovered/Not Resolved]
  - Pneumonia [Recovering/Resolving]
  - Pyrexia [Recovered/Resolved]

NARRATIVE: CASE EVENT DATE: 20221014
